FAERS Safety Report 20099296 (Version 1)
Quarter: 2021Q4

REPORT INFORMATION
  Report Type: Report from Study
  Country: CA (occurrence: CA)
  Receive Date: 20211122
  Receipt Date: 20211122
  Transmission Date: 20220304
  Serious: Yes (Other)
  Sender: FDA-Public Use
  Company Number: CA-JNJFOC-20210844156

PATIENT
  Age: 28 Year
  Sex: Female
  Weight: 60 kg

DRUGS (1)
  1. REMICADE [Suspect]
     Active Substance: INFLIXIMAB
     Indication: Crohn^s disease
     Dosage: 5 MG/KG?ON 27-JUL-2021 THE PATIENT RECEIVED THE DOSE.
     Route: 042
     Dates: start: 20210616

REACTIONS (6)
  - Crohn^s disease [Not Recovered/Not Resolved]
  - Fungal oesophagitis [Recovering/Resolving]
  - Odynophagia [Unknown]
  - Dysphagia [Unknown]
  - Malaise [Unknown]
  - Muscle spasms [Unknown]

NARRATIVE: CASE EVENT DATE: 20210101
